FAERS Safety Report 11832095 (Version 3)
Quarter: 2016Q1

REPORT INFORMATION
  Report Type: Report from Study
  Country: DE (occurrence: DE)
  Receive Date: 20151214
  Receipt Date: 20160202
  Transmission Date: 20160525
  Serious: Yes (Hospitalization)
  Sender: FDA-Public Use
  Company Number: PHHO2015DE017590

PATIENT
  Age: 73 Year
  Sex: Male
  Weight: 80 kg

DRUGS (31)
  1. PAZOPANIB [Suspect]
     Active Substance: PAZOPANIB
     Indication: METASTATIC RENAL CELL CARCINOMA
     Dosage: 800 MG, QD
     Route: 048
     Dates: start: 20150401
  2. ALLOPURINOL. [Concomitant]
     Active Substance: ALLOPURINOL
     Indication: HYPERURICAEMIA
     Dosage: 300 MG, UNK
     Route: 048
     Dates: start: 201301
  3. OXYGESIC [Concomitant]
     Active Substance: OXYCODONE
     Indication: PRODUCT USED FOR UNKNOWN INDICATION
     Dosage: 10 MG, QD
     Route: 048
     Dates: start: 201412
  4. GODAMED [Concomitant]
     Active Substance: ASPIRIN
     Indication: HEADACHE
     Dosage: 500 MG, PRN
     Route: 048
     Dates: start: 201504
  5. LIDOCAIN HYDROCHLORIDE [Concomitant]
     Indication: MUCOSAL INFLAMMATION
     Route: 065
  6. PENTALONG [Concomitant]
     Active Substance: PENTAERYTHRITOL TETRANITRATE
     Indication: HYPERTENSION
     Dosage: 100 MG, UNK
     Route: 065
     Dates: start: 200001
  7. NOVAMINSULFON [Concomitant]
     Active Substance: METAMIZOLE
     Indication: PAIN
     Dosage: 500 MG, UNK
     Route: 065
     Dates: start: 201411
  8. SIMVASTATIN. [Concomitant]
     Active Substance: SIMVASTATIN
     Indication: HYPERCHOLESTEROLAEMIA
     Dosage: 20 MG, UNK
     Route: 048
     Dates: start: 200001
  9. ALDACTONE [Concomitant]
     Active Substance: SPIRONOLACTONE
     Indication: HYPERURICAEMIA
     Dosage: 25 MG, UNK
     Route: 048
     Dates: start: 201001
  10. DEKRISTOL [Concomitant]
     Active Substance: CHOLECALCIFEROL
     Indication: PRODUCT USED FOR UNKNOWN INDICATION
     Dosage: 500 UG, UNK
     Route: 065
     Dates: start: 201309
  11. ARIXTRA [Concomitant]
     Active Substance: FONDAPARINUX SODIUM
     Indication: ATRIAL FIBRILLATION
     Dosage: 2.5 MG, BID
     Route: 065
  12. METOHEXAL [Concomitant]
     Active Substance: METOPROLOL SUCCINATE
     Indication: HYPERTENSION
     Dosage: 142.5 MG, UNK
     Route: 048
     Dates: start: 200001
  13. ESOMEPRAZOLE [Concomitant]
     Active Substance: ESOMEPRAZOLE
     Indication: PROPHYLAXIS
     Dosage: 40 MG, UNK
     Route: 048
     Dates: start: 200001
  14. MYKODERM HEILSALBE [Concomitant]
     Indication: PRODUCT USED FOR UNKNOWN INDICATION
     Route: 065
  15. OPIUM TINCTURE [Concomitant]
     Active Substance: OPIUM TINCTURE
     Indication: PRODUCT USED FOR UNKNOWN INDICATION
     Dosage: UNK
     Route: 065
     Dates: start: 20150819
  16. ASPIRIN. [Concomitant]
     Active Substance: ASPIRIN
     Indication: ATRIAL FIBRILLATION
     Dosage: 100 MG, UNK
     Route: 048
     Dates: start: 200001
  17. RAMIPRIL. [Concomitant]
     Active Substance: RAMIPRIL
     Indication: HYPERTENSION
     Dosage: 1.25 MG, UNK
     Route: 048
     Dates: start: 201409, end: 20151112
  18. AMBROXOL [Concomitant]
     Active Substance: AMBROXOL
     Indication: RESPIRATORY DISORDER
     Dosage: 45 MG, UNK
     Route: 048
     Dates: start: 201411, end: 20150310
  19. KAMILLOSAN [Concomitant]
     Indication: PRODUCT USED FOR UNKNOWN INDICATION
     Dosage: AS NEEDED
     Route: 061
     Dates: start: 201505
  20. TINATOX [Concomitant]
     Indication: LOCKED-IN SYNDROME
     Dosage: 50 MG, UNK
     Route: 065
     Dates: start: 20150916
  21. PAZOPANIB [Suspect]
     Active Substance: PAZOPANIB
     Dosage: 600 MG, QD
     Route: 048
     Dates: start: 20151001
  22. TORASEMIDE [Concomitant]
     Active Substance: TORSEMIDE
     Dosage: 50 MG, UNK
     Route: 048
     Dates: start: 20151113
  23. TAMSULOSIN [Concomitant]
     Active Substance: TAMSULOSIN
     Indication: BENIGN PROSTATIC HYPERPLASIA
     Dosage: 0.4 MG, UNK
     Route: 048
     Dates: start: 201410
  24. DERMATOP [Concomitant]
     Active Substance: PREDNICARBATE
     Indication: PRODUCT USED FOR UNKNOWN INDICATION
     Dosage: AS NEEDED
     Route: 061
     Dates: start: 20150527
  25. BEPANTEN [Concomitant]
     Indication: PRODUCT USED FOR UNKNOWN INDICATION
     Dosage: AS NEEDED
     Route: 061
     Dates: start: 201505
  26. VANEX [Concomitant]
     Active Substance: GUAIFENESIN\PSEUDOEPHEDRINE HYDROCHLORIDE
     Indication: NAUSEA
     Dosage: 2 MG, PRN
     Route: 048
     Dates: start: 20150610, end: 201507
  27. ZINKSALBE//ZINC OXIDE [Concomitant]
     Indication: PRODUCT USED FOR UNKNOWN INDICATION
     Dosage: UNK
     Route: 065
     Dates: start: 201510
  28. TORASEMIDE [Concomitant]
     Active Substance: TORSEMIDE
     Indication: HYPERURICAEMIA
     Dosage: 100 MG, UNK
     Route: 048
     Dates: start: 201201, end: 20151112
  29. AMBROXOL [Concomitant]
     Active Substance: AMBROXOL
     Indication: MALAISE
  30. IMODIUM [Concomitant]
     Active Substance: LOPERAMIDE HYDROCHLORIDE
     Indication: DIARRHOEA
     Dosage: 2 MG, PRN
     Route: 048
     Dates: start: 201505, end: 201507
  31. DEXAPANTHENOL [Concomitant]
     Indication: PRODUCT USED FOR UNKNOWN INDICATION
     Dosage: 1 %, UNK
     Route: 065

REACTIONS (3)
  - Stomatitis [Recovered/Resolved]
  - Bronchitis [Recovered/Resolved]
  - Malaise [Recovered/Resolved]

NARRATIVE: CASE EVENT DATE: 20150916
